FAERS Safety Report 9030856 (Version 1)
Quarter: 2013Q1

REPORT INFORMATION
  Report Type: Report from Study
  Country: CA (occurrence: CA)
  Receive Date: 20130123
  Receipt Date: 20130123
  Transmission Date: 20140127
  Serious: Yes (Hospitalization)
  Sender: FDA-Public Use
  Company Number: CA-JNJFOC-20130104028

PATIENT
  Age: 57 Year
  Sex: Male

DRUGS (16)
  1. REMICADE [Suspect]
     Indication: CROHN^S DISEASE
     Route: 042
     Dates: start: 20100512
  2. MEZAVANT [Concomitant]
     Route: 048
  3. PANTOPRAZOLE [Concomitant]
     Route: 065
  4. AERIUS [Concomitant]
     Route: 065
  5. SYNTHROID [Concomitant]
     Dosage: 0.05 (UNITS UNSPECIFIED)
     Route: 048
  6. DILAUDID [Concomitant]
     Route: 065
  7. MAGLUCATE [Concomitant]
     Route: 048
  8. METFORMIN [Concomitant]
     Route: 065
  9. CITALOPRAM [Concomitant]
     Dosage: 1/2 TABLET A DAY
     Route: 065
  10. METOCLOPRAMIDE [Concomitant]
     Dosage: AS NEEDED
     Route: 065
  11. PLAVIX [Concomitant]
     Dosage: 75 (UNITS UNSPECIFIED)
     Route: 065
  12. NASOCORT [Concomitant]
     Dosage: 2 PUFFS
     Route: 065
  13. DIOVAN [Concomitant]
     Route: 065
  14. HYDROXYZINE [Concomitant]
     Route: 065
  15. CETRIZINE [Concomitant]
     Route: 065
  16. INSULIN [Concomitant]
     Route: 065

REACTIONS (5)
  - Chest pain [Unknown]
  - Dyspnoea [Unknown]
  - Dizziness [Unknown]
  - Epigastric discomfort [Unknown]
  - Heart rate increased [Unknown]
